FAERS Safety Report 5225374-3 (Version None)
Quarter: 2007Q1

REPORT INFORMATION
  Report Type: 
  Country: None (occurrence: None)
  Receive Date: 20070131
  Receipt Date: 20070122
  Transmission Date: 20070707
  Serious: Yes (Other)
  Sender: FDA-Public Use
  Company Number: FR-BOEHRINGER INGELHEIM PHARMACEUTICALS, INC.-2007-FF-00098FF

PATIENT
  Age: 75 Year
  Sex: Male

DRUGS (7)
  1. SPIRIVA [Suspect]
     Indication: CHRONIC OBSTRUCTIVE PULMONARY DISEASE
     Route: 055
     Dates: start: 20061214
  2. MIFLASONE [Concomitant]
     Dates: start: 20020501
  3. MODOPAR [Concomitant]
     Dates: start: 20050101
  4. ISOPTIN [Concomitant]
     Dates: start: 20050101
  5. ALDALIX [Concomitant]
     Dates: start: 20050101
  6. TAREG [Concomitant]
     Dates: start: 20050101
  7. DIGOXIN [Concomitant]
     Dates: start: 20050101

REACTIONS (6)
  - CHEST DISCOMFORT [None]
  - CONJUNCTIVAL HYPERAEMIA [None]
  - EPISTAXIS [None]
  - HEADACHE [None]
  - PALPITATIONS [None]
  - THIRST [None]
